FAERS Safety Report 16780549 (Version 3)
Quarter: 2019Q3

REPORT INFORMATION
  Report Type: Spontaneous
  Country: US (occurrence: US)
  Receive Date: 20190906
  Receipt Date: 20190923
  Transmission Date: 20191005
  Serious: Yes (Hospitalization, Other)
  Sender: FDA-Public Use
  Company Number: US-PFIZER INC-2019374785

PATIENT
  Age: 41 Year
  Sex: Male

DRUGS (1)
  1. AMIODARONE HCL [Suspect]
     Active Substance: AMIODARONE HYDROCHLORIDE
     Indication: ATRIAL FIBRILLATION
     Dosage: UNK

REACTIONS (7)
  - Acute febrile neutrophilic dermatosis [Recovered/Resolved]
  - Hypersensitivity vasculitis [Recovered/Resolved]
  - Thrombophlebitis [Recovered/Resolved]
  - Disease recurrence [Recovered/Resolved]
  - Skin lesion [Recovered/Resolved]
  - Infection [Recovered/Resolved]
  - Dermatosis [Recovered/Resolved]
